FAERS Safety Report 4672961-7 (Version None)
Quarter: 2005Q2

REPORT INFORMATION
  Report Type: 
  Country: None (occurrence: None)
  Receive Date: 20050523
  Receipt Date: 20050516
  Transmission Date: 20051028
  Serious: Yes (Death)
  Sender: FDA-Public Use
  Company Number: 2005075978

PATIENT
  Age: 56 Year
  Sex: Female

DRUGS (4)
  1. GEODON [Suspect]
     Indication: SCHIZOAFFECTIVE DISORDER
     Dosage: 120 MG
  2. LEXAPRO [Concomitant]
  3. XANAX [Concomitant]
  4. ANTIHISTAMINES (ANTIHISTAMINES) [Concomitant]

REACTIONS (1)
  - DEATH [None]
